FAERS Safety Report 15884494 (Version 1)
Quarter: 2019Q1

REPORT INFORMATION
  Report Type: Spontaneous
  Country: JP (occurrence: JP)
  Receive Date: 20190129
  Receipt Date: 20190129
  Transmission Date: 20190417
  Serious: Yes (Other)
  Sender: FDA-Public Use
  Company Number: JP-BAYER-2019-017027

PATIENT
  Age: 9 Decade
  Sex: Male

DRUGS (1)
  1. NEXAVAR [Suspect]
     Active Substance: SORAFENIB
     Indication: HEPATOCELLULAR CARCINOMA
     Dosage: 200 MG, BID
     Route: 048
     Dates: start: 20181031, end: 20181224

REACTIONS (3)
  - Ascites [Recovered/Resolved]
  - Child-Pugh-Turcotte score increased [None]
  - Hepatic function abnormal [None]

NARRATIVE: CASE EVENT DATE: 20181224
